FAERS Safety Report 8724183 (Version 4)
Quarter: 2012Q4

REPORT INFORMATION
  Report Type: 
  Country: US (occurrence: US)
  Receive Date: 20120815
  Receipt Date: 20121127
  Transmission Date: 20130627
  Serious: Yes (Hospitalization)
  Sender: FDA-Public Use
  Company Number: US-INCYTE CORPORATION-2012IN001495

PATIENT
  Age: 66 None
  Sex: Female
  Weight: 58.96 kg

DRUGS (3)
  1. JAKAFI [Suspect]
     Indication: MYELOFIBROSIS
     Dosage: 10 mg, bid
     Route: 048
     Dates: start: 201206, end: 2012
  2. JAKAFI [Suspect]
     Dosage: 10 mg, bid
     Route: 048
     Dates: start: 2012
  3. HYDROXYUREA [Concomitant]
     Dosage: 500 mg, qd

REACTIONS (5)
  - Fall [Recovered/Resolved]
  - Hip fracture [Recovered/Resolved]
  - Arthritis infective [Unknown]
  - Post procedural infection [None]
  - Incision site haematoma [None]
